FAERS Safety Report 12285262 (Version 1)
Quarter: 2016Q2

REPORT INFORMATION
  Report Type: Spontaneous
  Country: US (occurrence: None)
  Receive Date: 20160419
  Receipt Date: 20160419
  Transmission Date: 20160815
  Serious: Yes (Other)
  Sender: FDA-Public Use
  Company Number: None

PATIENT
  Age: 43 Year
  Sex: Male
  Weight: 131.54 kg

DRUGS (1)
  1. ATORVASTATIN [Suspect]
     Active Substance: ATORVASTATIN
     Dosage: 40 TABLET(S) ONCE A DAY TAKEN BY MOUTH
     Route: 048

REACTIONS (1)
  - Thyroid cancer [None]

NARRATIVE: CASE EVENT DATE: 20150622
